FAERS Safety Report 12792945 (Version 3)
Quarter: 2017Q2

REPORT INFORMATION
  Report Type: Spontaneous
  Country: US (occurrence: US)
  Receive Date: 20160929
  Receipt Date: 20170406
  Transmission Date: 20170830
  Serious: No
  Sender: FDA-Public Use
  Company Number: US-JNJFOC-20160916279

PATIENT
  Sex: Male

DRUGS (10)
  1. RISPERDAL [Suspect]
     Active Substance: RISPERIDONE
     Indication: ATTENTION DEFICIT/HYPERACTIVITY DISORDER
     Route: 048
     Dates: start: 200811, end: 200812
  2. RISPERDAL [Suspect]
     Active Substance: RISPERIDONE
     Indication: AUTISM SPECTRUM DISORDER
     Route: 048
     Dates: start: 200811, end: 200812
  3. RISPERDAL [Suspect]
     Active Substance: RISPERIDONE
     Indication: AUTISM SPECTRUM DISORDER
     Dosage: 0.5 MG TO 1 MG
     Route: 048
     Dates: start: 200810
  4. RISPERDAL [Suspect]
     Active Substance: RISPERIDONE
     Indication: ATTENTION DEFICIT/HYPERACTIVITY DISORDER
     Dosage: 0.5 MG TO 1 MG
     Route: 048
     Dates: start: 200810
  5. RISPERDAL [Suspect]
     Active Substance: RISPERIDONE
     Indication: AKATHISIA
     Dosage: 0.5 MG TO 1 MG
     Route: 048
     Dates: start: 200810
  6. RISPERDAL [Suspect]
     Active Substance: RISPERIDONE
     Indication: AKATHISIA
     Route: 048
  7. RISPERDAL [Suspect]
     Active Substance: RISPERIDONE
     Indication: AKATHISIA
     Route: 048
     Dates: start: 200811, end: 200812
  8. SEROQUEL [Suspect]
     Active Substance: QUETIAPINE FUMARATE
     Indication: PRODUCT USED FOR UNKNOWN INDICATION
     Route: 065
  9. RISPERDAL [Suspect]
     Active Substance: RISPERIDONE
     Indication: ATTENTION DEFICIT/HYPERACTIVITY DISORDER
     Route: 048
  10. RISPERDAL [Suspect]
     Active Substance: RISPERIDONE
     Indication: AUTISM SPECTRUM DISORDER
     Route: 048

REACTIONS (7)
  - Galactorrhoea [Unknown]
  - Akathisia [Unknown]
  - Abnormal weight gain [Unknown]
  - Psychomotor hyperactivity [Unknown]
  - Gynaecomastia [Unknown]
  - Drug ineffective [Unknown]
  - Sedation [Unknown]

NARRATIVE: CASE EVENT DATE: 2008
